FAERS Safety Report 23034220 (Version 1)
Quarter: 2023Q4

REPORT INFORMATION
  Report Type: Spontaneous
  Country: US (occurrence: US)
  Receive Date: 20231005
  Receipt Date: 20231005
  Transmission Date: 20240110
  Serious: Yes (Other)
  Sender: FDA-Public Use
  Company Number: US-AMGEN-USASP2023173554

PATIENT

DRUGS (3)
  1. XGEVA [Suspect]
     Active Substance: DENOSUMAB
     Indication: Product used for unknown indication
     Dosage: UNK
     Route: 065
  2. IBRANCE [Concomitant]
     Active Substance: PALBOCICLIB
  3. LETROZOLE [Concomitant]
     Active Substance: LETROZOLE

REACTIONS (5)
  - Breast cancer metastatic [Unknown]
  - Pain in extremity [Unknown]
  - Arthralgia [Unknown]
  - Dysstasia [Unknown]
  - Nausea [Unknown]
